FAERS Safety Report 4693716-3 (Version None)
Quarter: 2005Q2

REPORT INFORMATION
  Report Type: 
  Country: None (occurrence: None)
  Receive Date: 20050615
  Receipt Date: 20050601
  Transmission Date: 20051028
  Serious: Yes (Death, Hospitalization, Other)
  Sender: FDA-Public Use
  Company Number: USA050598920

PATIENT
  Age: 79 Year
  Sex: Male

DRUGS (21)
  1. FORTEO [Suspect]
     Indication: OSTEOPOROSIS
     Dates: start: 20040801
  2. NAPROXEN SODIUM [Concomitant]
  3. DECADRON (DEXAMTHASONE) [Concomitant]
  4. PREVACID [Concomitant]
  5. REQUIP [Concomitant]
  6. LASIX [Concomitant]
  7. LEXAPRO [Concomitant]
  8. NORVASC [Concomitant]
  9. POTASSIUM CHLORIDE [Concomitant]
  10. TUMS (CALCIUM CARBONATE) [Concomitant]
  11. COLACE (DOCUSATE  SODIUM) [Concomitant]
  12. TYLENOL [Concomitant]
  13. BENADRYL [Concomitant]
  14. NEURONTIN [Concomitant]
  15. NITROGLYCERIN [Concomitant]
  16. PRAVACHOL [Concomitant]
  17. SEROQUEL [Concomitant]
  18. XANAX [Concomitant]
  19. OXYCONTIN [Concomitant]
  20. OXYCODONE HCL [Concomitant]
  21. LISINOPRIL [Concomitant]

REACTIONS (14)
  - ADENOCARCINOMA [None]
  - BLADDER CANCER [None]
  - BLOOD CULTURE POSITIVE [None]
  - BLOOD PRESSURE INCREASED [None]
  - DISEASE RECURRENCE [None]
  - HAEMATOCRIT DECREASED [None]
  - HAEMATURIA [None]
  - HAEMOGLOBIN DECREASED [None]
  - METASTASES TO BONE [None]
  - METASTATIC NEOPLASM [None]
  - PAIN [None]
  - PNEUMONIA STAPHYLOCOCCAL [None]
  - SEPSIS [None]
  - SERRATIA INFECTION [None]
